FAERS Safety Report 8537338-2 (Version None)
Quarter: 2012Q3

REPORT INFORMATION
  Report Type: 
  Country: None (occurrence: None)
  Receive Date: 20120725
  Receipt Date: 20120716
  Transmission Date: 20120928
  Serious: Yes (Hospitalization)
  Sender: FDA-Public Use
  Company Number: US-ELI_LILLY_AND_COMPANY-US201206009264

PATIENT
  Sex: Female

DRUGS (1)
  1. FORTEO [Suspect]
     Indication: OSTEOPOROSIS
     Dosage: 20 UG, QD
     Route: 065
     Dates: start: 20111001

REACTIONS (5)
  - INJECTION SITE HAEMATOMA [None]
  - PAIN [None]
  - DISCOMFORT [None]
  - HOSPITALISATION [None]
  - ABDOMINAL DISCOMFORT [None]
